FAERS Safety Report 5425276-3 (Version None)
Quarter: 2007Q3

REPORT INFORMATION
  Report Type: 
  Country: None (occurrence: None)
  Receive Date: 20070824
  Receipt Date: 20070813
  Transmission Date: 20080115
  Serious: Yes (Other)
  Sender: FDA-Public Use
  Company Number: US-PFIZER INC-2007042976

PATIENT
  Sex: Male

DRUGS (1)
  1. CELEBREX [Suspect]
     Indication: BACK PAIN

REACTIONS (5)
  - BLINDNESS [None]
  - CARDIOVASCULAR DISORDER [None]
  - NEOVASCULARISATION [None]
  - RETINAL ARTERY OCCLUSION [None]
  - VITREOUS HAEMORRHAGE [None]
